FAERS Safety Report 10180454 (Version 2)
Quarter: 2014Q2

REPORT INFORMATION
  Report Type: Spontaneous
  Country: US (occurrence: US)
  Receive Date: 20140519
  Receipt Date: 20140519
  Transmission Date: 20141212
  Serious: No
  Sender: FDA-Public Use
  Company Number: US-AMGEN INC.-USASP2013085122

PATIENT
  Age: 71 Year
  Sex: Female
  Weight: 56.69 kg

DRUGS (1)
  1. PROLIA [Suspect]
     Indication: OSTEOPOROSIS
     Dosage: UNK
     Route: 065
     Dates: start: 20130821

REACTIONS (2)
  - Rash [Not Recovered/Not Resolved]
  - Eczema [Unknown]
